FAERS Safety Report 8531101-4 (Version None)
Quarter: 2012Q3

REPORT INFORMATION
  Report Type: 
  Country: None (occurrence: None)
  Receive Date: 20120711
  Receipt Date: 20120628
  Transmission Date: 20120928
  Serious: Yes (Other)
  Sender: FDA-Public Use
  Company Number: JP-20120039

PATIENT
  Sex: Female

DRUGS (1)
  1. 100ML (HEXABRIX 320) (IOXAGLIC ACID), 12HJ011 [Suspect]
     Indication: ANGIOGRAM
     Dosage: 10 ML (10 ML, 1 IN 1 TOTAL) INTRAVENOUS (NOT OTHERWISE SPECIFIED)
     Route: 042
     Dates: start: 20120626, end: 20120626

REACTIONS (3)
  - OXYGEN SATURATION DECREASED [None]
  - ANAPHYLACTIC REACTION [None]
  - FLUSHING [None]
